FAERS Safety Report 20994421 (Version 1)
Quarter: 2022Q2

REPORT INFORMATION
  Report Type: Spontaneous
  Country: US (occurrence: US)
  Receive Date: 20220622
  Receipt Date: 20220622
  Transmission Date: 20220721
  Serious: Yes (Other)
  Sender: FDA-Public Use
  Company Number: US-AMERICAN REGENT INC-2022001687

PATIENT
  Age: 44 Year
  Sex: Female
  Weight: 122.45 kg

DRUGS (49)
  1. FERRIC CARBOXYMALTOSE [Suspect]
     Active Substance: FERRIC CARBOXYMALTOSE
     Indication: Iron deficiency anaemia
     Dosage: 750 MILLIGRAM MIXED IN NS 250 ML
     Route: 042
     Dates: start: 20161028, end: 20161028
  2. FERRIC CARBOXYMALTOSE [Suspect]
     Active Substance: FERRIC CARBOXYMALTOSE
     Dosage: 750 MILLIGRAM MIXED IN NS 250 ML , SINGLE
     Route: 042
     Dates: start: 20161104, end: 20161104
  3. FERRIC CARBOXYMALTOSE [Suspect]
     Active Substance: FERRIC CARBOXYMALTOSE
     Dosage: 750 MILLIGRAM
     Route: 042
     Dates: start: 20170329, end: 20170329
  4. FERRIC CARBOXYMALTOSE [Suspect]
     Active Substance: FERRIC CARBOXYMALTOSE
     Dosage: 750 MILLIGRAM
     Route: 042
     Dates: start: 20170405, end: 20170405
  5. FERRIC CARBOXYMALTOSE [Suspect]
     Active Substance: FERRIC CARBOXYMALTOSE
     Dosage: 750 MILLIGRAM
     Route: 042
     Dates: start: 20170815, end: 20170815
  6. FERRIC CARBOXYMALTOSE [Suspect]
     Active Substance: FERRIC CARBOXYMALTOSE
     Dosage: 750 MILLIGRAM
     Route: 042
     Dates: start: 20170822, end: 20170822
  7. NEXIUM [Concomitant]
     Active Substance: ESOMEPRAZOLE MAGNESIUM
     Indication: Product used for unknown indication
     Dosage: 20 MILLIGRAM, QD EVERY MORNING BEFORE BREAKFAST
     Route: 048
  8. HYDROCODONE [Concomitant]
     Active Substance: HYDROCODONE
     Indication: Sciatica
     Dosage: UNK
     Route: 065
  9. MIRENA [Concomitant]
     Active Substance: LEVONORGESTREL
     Indication: Heavy menstrual bleeding
     Dosage: UNK
     Route: 015
  10. PREDNISONE [Concomitant]
     Active Substance: PREDNISONE
     Indication: Immune tolerance induction
     Dosage: 20 MILLIGRAM TAKE THE NIGHT BEFORE DESENSITIZATION
     Route: 048
     Dates: start: 20170328, end: 20170328
  11. PREDNISONE [Concomitant]
     Active Substance: PREDNISONE
     Dosage: 20 MILLIGRAM TAKE THE NIGHT BEFORE DESENSITIZATION
     Route: 048
     Dates: start: 20170404, end: 20170404
  12. PREDNISONE [Concomitant]
     Active Substance: PREDNISONE
     Dosage: 20 MILLIGRAM TAKE THE NIGHT BEFORE DESENSITIZATION
     Route: 048
     Dates: start: 20170814, end: 20170814
  13. PREDNISONE [Concomitant]
     Active Substance: PREDNISONE
     Dosage: 20 MILLIGRAM TAKE THE NIGHT BEFORE DESENSITIZATION
     Route: 048
     Dates: start: 20170821, end: 20170821
  14. DOXEPIN HYDROCHLORIDE [Concomitant]
     Active Substance: DOXEPIN HYDROCHLORIDE
     Indication: Immune tolerance induction
     Dosage: 10 MILLIGRAM TAKE THE NIGHT BEFORE AND MORNING OF
     Route: 048
     Dates: start: 20170328, end: 20170328
  15. DOXEPIN HYDROCHLORIDE [Concomitant]
     Active Substance: DOXEPIN HYDROCHLORIDE
     Dosage: 10 MILLIGRAM TAKE THE NIGHT BEFORE AND MORNING OF
     Route: 048
     Dates: start: 20170329, end: 20170329
  16. DOXEPIN HYDROCHLORIDE [Concomitant]
     Active Substance: DOXEPIN HYDROCHLORIDE
     Dosage: 10 MILLIGRAM TAKE THE NIGHT BEFORE AND MORNING OF
     Route: 048
     Dates: start: 20170404, end: 20170404
  17. DOXEPIN HYDROCHLORIDE [Concomitant]
     Active Substance: DOXEPIN HYDROCHLORIDE
     Dosage: 10 MILLIGRAM TAKE THE NIGHT BEFORE AND MORNING OF
     Route: 048
     Dates: start: 20170405, end: 20170405
  18. DOXEPIN HYDROCHLORIDE [Concomitant]
     Active Substance: DOXEPIN HYDROCHLORIDE
     Dosage: 10 MILLIGRAM TAKE THE NIGHT BEFORE AND MORNING OF
     Route: 048
     Dates: start: 20170814, end: 20170814
  19. DOXEPIN HYDROCHLORIDE [Concomitant]
     Active Substance: DOXEPIN HYDROCHLORIDE
     Dosage: 10 MILLIGRAM TAKE THE NIGHT BEFORE AND MORNING OF
     Route: 048
     Dates: start: 20170815, end: 20170815
  20. DOXEPIN HYDROCHLORIDE [Concomitant]
     Active Substance: DOXEPIN HYDROCHLORIDE
     Dosage: 10 MILLIGRAM TAKE THE NIGHT BEFORE AND MORNING OF
     Route: 048
     Dates: start: 20170821, end: 20170821
  21. DOXEPIN HYDROCHLORIDE [Concomitant]
     Active Substance: DOXEPIN HYDROCHLORIDE
     Dosage: 10 MILLIGRAM TAKE THE NIGHT BEFORE AND MORNING OF
     Route: 048
     Dates: start: 20170822, end: 20170822
  22. ZYRTEC [Concomitant]
     Active Substance: CETIRIZINE HYDROCHLORIDE
     Indication: Immune tolerance induction
     Dosage: 10 MILLIGRAM TAKE ONE THE NIGHT BEFORE AND MORNING
     Route: 048
     Dates: start: 20170328, end: 20170328
  23. ZYRTEC [Concomitant]
     Active Substance: CETIRIZINE HYDROCHLORIDE
     Dosage: 10 MILLIGRAM TAKE ONE THE NIGHT BEFORE AND MORNING
     Route: 048
     Dates: start: 20170329, end: 20170329
  24. ZYRTEC [Concomitant]
     Active Substance: CETIRIZINE HYDROCHLORIDE
     Dosage: 10 MILLIGRAM TAKE ONE THE NIGHT BEFORE AND MORNING
     Route: 048
     Dates: start: 20170404, end: 20170404
  25. ZYRTEC [Concomitant]
     Active Substance: CETIRIZINE HYDROCHLORIDE
     Dosage: 10 MILLIGRAM TAKE ONE THE NIGHT BEFORE AND MORNING
     Route: 048
     Dates: start: 20170405, end: 20170405
  26. ZYRTEC [Concomitant]
     Active Substance: CETIRIZINE HYDROCHLORIDE
     Dosage: 10 MILLIGRAM TAKE ONE THE NIGHT BEFORE AND MORNING
     Route: 048
     Dates: start: 20170814, end: 20170814
  27. ZYRTEC [Concomitant]
     Active Substance: CETIRIZINE HYDROCHLORIDE
     Dosage: 10 MILLIGRAM TAKE ONE THE NIGHT BEFORE AND MORNING
     Route: 048
     Dates: start: 20170815, end: 20170815
  28. ZYRTEC [Concomitant]
     Active Substance: CETIRIZINE HYDROCHLORIDE
     Dosage: 10 MILLIGRAM TAKE ONE THE NIGHT BEFORE AND MORNING
     Route: 048
     Dates: start: 20170821, end: 20170821
  29. ZYRTEC [Concomitant]
     Active Substance: CETIRIZINE HYDROCHLORIDE
     Dosage: 10 MILLIGRAM TAKE ONE THE NIGHT BEFORE AND MORNING
     Route: 048
     Dates: start: 20170822, end: 20170822
  30. SINGULAIR [Concomitant]
     Active Substance: MONTELUKAST SODIUM
     Indication: Immune tolerance induction
     Dosage: 10 MILLIGRAM TAKE ONE THE NIGHT BEFORE AND MORNING OF
     Route: 048
     Dates: start: 20170328, end: 20170328
  31. SINGULAIR [Concomitant]
     Active Substance: MONTELUKAST SODIUM
     Dosage: 10 MILLIGRAM TAKE ONE THE NIGHT BEFORE AND MORNING OF
     Route: 048
     Dates: start: 20170329, end: 20170329
  32. SINGULAIR [Concomitant]
     Active Substance: MONTELUKAST SODIUM
     Dosage: 10 MILLIGRAM TAKE ONE THE NIGHT BEFORE AND MORNING OF
     Route: 048
     Dates: start: 20170404, end: 20170404
  33. SINGULAIR [Concomitant]
     Active Substance: MONTELUKAST SODIUM
     Dosage: 10 MILLIGRAM TAKE ONE THE NIGHT BEFORE AND MORNING OF
     Route: 048
     Dates: start: 20170405, end: 20170405
  34. SINGULAIR [Concomitant]
     Active Substance: MONTELUKAST SODIUM
     Dosage: 10 MILLIGRAM TAKE ONE THE NIGHT BEFORE AND MORNING OF
     Route: 048
     Dates: start: 20170814, end: 20170814
  35. SINGULAIR [Concomitant]
     Active Substance: MONTELUKAST SODIUM
     Dosage: 10 MILLIGRAM TAKE ONE THE NIGHT BEFORE AND MORNING OF
     Route: 048
     Dates: start: 20170815, end: 20170815
  36. SINGULAIR [Concomitant]
     Active Substance: MONTELUKAST SODIUM
     Dosage: 10 MILLIGRAM TAKE ONE THE NIGHT BEFORE AND MORNING OF
     Route: 048
     Dates: start: 20170821, end: 20170821
  37. SINGULAIR [Concomitant]
     Active Substance: MONTELUKAST SODIUM
     Dosage: 10 MILLIGRAM TAKE ONE THE NIGHT BEFORE AND MORNING OF
     Route: 048
     Dates: start: 20170822, end: 20170822
  38. ZANTAC [Concomitant]
     Active Substance: RANITIDINE HYDROCHLORIDE
     Indication: Immune tolerance induction
     Dosage: 150 MILLIGRAM TAKE ONE THE NIGHT BEFORE AND MORNING
     Route: 048
     Dates: start: 20170328, end: 20170328
  39. ZANTAC [Concomitant]
     Active Substance: RANITIDINE HYDROCHLORIDE
     Dosage: 150 MILLIGRAM TAKE ONE THE NIGHT BEFORE AND MORNING
     Route: 048
     Dates: start: 20170329, end: 20170329
  40. ZANTAC [Concomitant]
     Active Substance: RANITIDINE HYDROCHLORIDE
     Dosage: 150 MILLIGRAM TAKE ONE THE NIGHT BEFORE AND MORNING
     Route: 048
     Dates: start: 20170404, end: 20170404
  41. ZANTAC [Concomitant]
     Active Substance: RANITIDINE HYDROCHLORIDE
     Dosage: 150 MILLIGRAM TAKE ONE THE NIGHT BEFORE AND MORNING
     Route: 048
     Dates: start: 20170405, end: 20170405
  42. ZANTAC [Concomitant]
     Active Substance: RANITIDINE HYDROCHLORIDE
     Dosage: 150 MILLIGRAM TAKE ONE THE NIGHT BEFORE AND MORNING
     Route: 048
     Dates: start: 20170814, end: 20170814
  43. ZANTAC [Concomitant]
     Active Substance: RANITIDINE HYDROCHLORIDE
     Dosage: 150 MILLIGRAM TAKE ONE THE NIGHT BEFORE AND MORNING
     Route: 048
     Dates: start: 20170815, end: 20170815
  44. ZANTAC [Concomitant]
     Active Substance: RANITIDINE HYDROCHLORIDE
     Dosage: 150 MILLIGRAM TAKE ONE THE NIGHT BEFORE AND MORNING
     Route: 048
     Dates: start: 20170821, end: 20170821
  45. ZANTAC [Concomitant]
     Active Substance: RANITIDINE HYDROCHLORIDE
     Dosage: 150 MILLIGRAM TAKE ONE THE NIGHT BEFORE AND MORNING
     Route: 048
     Dates: start: 20170822, end: 20170822
  46. ATIVAN [Concomitant]
     Active Substance: LORAZEPAM
     Indication: Premedication
     Dosage: 0.5 MILLIGRAM
     Route: 042
     Dates: start: 20170405, end: 20170405
  47. ATIVAN [Concomitant]
     Active Substance: LORAZEPAM
     Dosage: 0.5 MILLIGRAM
     Route: 042
     Dates: start: 20170815, end: 20170815
  48. ATIVAN [Concomitant]
     Active Substance: LORAZEPAM
     Dosage: 0.5 MILLIGRAM
     Route: 042
     Dates: start: 20170822, end: 20170822
  49. PREDNISONE [Concomitant]
     Active Substance: PREDNISONE
     Indication: Sciatica
     Dosage: 0.5 UNK, BID
     Route: 048

REACTIONS (9)
  - Dysphagia [Recovered/Resolved]
  - Oropharyngeal pain [Recovered/Resolved]
  - Hypophosphataemia [Unknown]
  - Anaphylactic reaction [Recovered/Resolved]
  - Peripheral swelling [Unknown]
  - Pain in extremity [Unknown]
  - Pruritus [Unknown]
  - Constipation [Unknown]
  - Product preparation issue [Unknown]

NARRATIVE: CASE EVENT DATE: 20161028
